FAERS Safety Report 4840285-0 (Version None)
Quarter: 2005Q4

REPORT INFORMATION
  Report Type: 
  Country: None (occurrence: None)
  Receive Date: 20051125
  Receipt Date: 20051115
  Transmission Date: 20060501
  Serious: Yes (Death, Other)
  Sender: FDA-Public Use
  Company Number: USA-2005-0021664

PATIENT
  Age: 39 Year
  Sex: Male

DRUGS (5)
  1. OXYCONTIN [Suspect]
  2. XANAX [Suspect]
  3. CANNABIS (CANNABIS) [Suspect]
  4. ALCOHOL (ETHANOL) [Suspect]
  5. ANTI-HISTAMINE TAB [Suspect]

REACTIONS (8)
  - ALCOHOLISM [None]
  - DEPRESSION [None]
  - DRUG ABUSER [None]
  - DRUG PRESCRIBING ERROR [None]
  - DRUG SCREEN POSITIVE [None]
  - GUN SHOT WOUND [None]
  - INTENTIONAL SELF-INJURY [None]
  - PANIC DISORDER [None]
